FAERS Safety Report 4604007-0 (Version None)
Quarter: 2005Q1

REPORT INFORMATION
  Report Type: 
  Country: None (occurrence: None)
  Receive Date: 20050310
  Receipt Date: 20050228
  Transmission Date: 20050727
  Serious: Yes (Hospitalization)
  Sender: FDA-Public Use
  Company Number: FR-BRISTOL-MYERS SQUIBB COMPANY-12881256

PATIENT
  Age: 49 Year
  Sex: Female

DRUGS (2)
  1. DIDANOSINE [Suspect]
     Indication: HIV INFECTION
     Route: 048
     Dates: start: 20020116, end: 20050107
  2. EPIVIR [Suspect]
     Indication: HIV INFECTION
     Route: 048
     Dates: start: 20020116, end: 20050107

REACTIONS (2)
  - FANCONI SYNDROME ACQUIRED [None]
  - PANCREATITIS [None]
